FAERS Safety Report 20989214 (Version 1)
Quarter: 2022Q2

REPORT INFORMATION
  Report Type: Spontaneous
  Country: US (occurrence: US)
  Receive Date: 20220621
  Receipt Date: 20220621
  Transmission Date: 20220721
  Serious: No
  Sender: FDA-Public Use
  Company Number: US-ORGANON-O2206USA000535

PATIENT
  Age: 79 Year
  Sex: Female

DRUGS (6)
  1. ZOCOR [Suspect]
     Active Substance: SIMVASTATIN
     Indication: Blood cholesterol
     Dosage: 20 MILLIGRAM, QAM
     Route: 048
  2. ZOCOR [Suspect]
     Active Substance: SIMVASTATIN
     Dosage: 40 MILLIGRAM, QAM
     Route: 048
  3. SYNTHROID [Concomitant]
     Active Substance: LEVOTHYROXINE SODIUM
     Indication: Thyroid disorder
  4. VITAMIN D3 [Concomitant]
     Active Substance: CHOLECALCIFEROL
  5. ASPIRIN [Concomitant]
     Active Substance: ASPIRIN
  6. MIRALAX [Concomitant]
     Active Substance: POLYETHYLENE GLYCOL 3350
     Dosage: 17 MILLIGRAM, EVERY MORNING

REACTIONS (2)
  - COVID-19 [Unknown]
  - Diarrhoea [Unknown]

NARRATIVE: CASE EVENT DATE: 20220501
